FAERS Safety Report 7186007-2 (Version None)
Quarter: 2010Q4

REPORT INFORMATION
  Report Type: 
  Country: None (occurrence: None)
  Receive Date: 20101222
  Receipt Date: 20101215
  Transmission Date: 20110411
  Serious: Yes (Death)
  Sender: FDA-Public Use
  Company Number: US-PFIZER INC-2010117358

PATIENT
  Sex: Male
  Weight: 86.168 kg

DRUGS (7)
  1. LYRICA [Suspect]
     Dosage: 100 MG, UNK
     Route: 048
  2. LIPITOR [Suspect]
     Dosage: 20 MG, UNK
     Route: 048
  3. ARTHROTEC [Suspect]
     Dosage: 50 MG, UNK
     Route: 048
  4. REQUIP [Concomitant]
     Dosage: 4 MG, UNK
     Route: 048
  5. PERCOCET [Concomitant]
     Dosage: UNK
     Route: 048
  6. SEROQUEL [Concomitant]
     Dosage: UNK
     Route: 048
  7. ACETYLSALICYLIC ACID [Concomitant]
     Dosage: UNK

REACTIONS (1)
  - CARDIAC FAILURE CONGESTIVE [None]
